FAERS Safety Report 10022666 (Version 4)
Quarter: 2014Q2

REPORT INFORMATION
  Report Type: Spontaneous
  Country: US (occurrence: US)
  Receive Date: 20140319
  Receipt Date: 20140425
  Transmission Date: 20141212
  Serious: Yes (Other)
  Sender: FDA-Public Use
  Company Number: US-PFIZER INC-2014043583

PATIENT
  Age: 81 Year
  Sex: Male

DRUGS (1)
  1. CADUET [Suspect]
     Dosage: UNK
     Dates: start: 2009

REACTIONS (1)
  - Ulcer haemorrhage [Unknown]
